FAERS Safety Report 12552655 (Version 1)
Quarter: 2016Q3

REPORT INFORMATION
  Report Type: Spontaneous
  Country: US (occurrence: None)
  Receive Date: 20160712
  Receipt Date: 20160712
  Transmission Date: 20161109
  Serious: No
  Sender: FDA-Public Use
  Company Number: None

PATIENT
  Age: 64 Year
  Sex: Female

DRUGS (1)
  1. STELARA [Suspect]
     Active Substance: USTEKINUMAB
     Indication: PRODUCT USED FOR UNKNOWN INDICATION
     Dosage: 90MG Q12 WEEKS SQ
     Route: 058
     Dates: start: 20150722, end: 20160711

REACTIONS (3)
  - Hot flush [None]
  - Hyperhidrosis [None]
  - Cold sweat [None]

NARRATIVE: CASE EVENT DATE: 20160711
